FAERS Safety Report 10311202 (Version 7)
Quarter: 2015Q3

REPORT INFORMATION
  Report Type: Spontaneous
  Country: US (occurrence: US)
  Receive Date: 20140717
  Receipt Date: 20150923
  Transmission Date: 20151125
  Serious: Yes (Death, Life-Threatening, Hospitalization, Other)
  Sender: FDA-Public Use
  Company Number: US-MERCK-1407USA006803

PATIENT
  Sex: Male
  Weight: 85.71 kg

DRUGS (4)
  1. BYETTA [Suspect]
     Active Substance: EXENATIDE
     Dosage: 5 MICROGRAM, BID
     Dates: start: 20070327
  2. BYETTA [Suspect]
     Active Substance: EXENATIDE
     Dosage: 10 MICROGRAM, BID
     Dates: start: 20070226
  3. JANUVIA [Suspect]
     Active Substance: SITAGLIPTIN PHOSPHATE
     Indication: TYPE 2 DIABETES MELLITUS
     Dosage: 100 MG, QD
     Route: 048
     Dates: start: 20071214
  4. BYETTA [Suspect]
     Active Substance: EXENATIDE
     Indication: TYPE 2 DIABETES MELLITUS
     Dosage: 5 MICROGRAM, BID
     Dates: start: 20070126

REACTIONS (40)
  - Urinary tract infection [Unknown]
  - Hypertension [Unknown]
  - Nephrolithiasis [Unknown]
  - Pancreatic carcinoma metastatic [Fatal]
  - Abscess [Unknown]
  - Radiotherapy [Unknown]
  - Dry throat [Unknown]
  - Sinus tachycardia [Unknown]
  - Dehydration [Unknown]
  - Memory impairment [Unknown]
  - Back pain [Not Recovered/Not Resolved]
  - Small intestinal obstruction [Unknown]
  - Postoperative adhesion [Unknown]
  - Splenic vein thrombosis [Unknown]
  - Pain [Unknown]
  - General physical health deterioration [Unknown]
  - Contusion [Unknown]
  - Diverticulum [Unknown]
  - Pulmonary embolism [Unknown]
  - Pyrexia [Unknown]
  - Hallucination [Unknown]
  - Breath sounds abnormal [Unknown]
  - Pancreaticoduodenectomy [Unknown]
  - Pancreatic carcinoma recurrent [Unknown]
  - Metastases to liver [Unknown]
  - Rash pruritic [Unknown]
  - Muscular weakness [Unknown]
  - Confusional state [Unknown]
  - Pain [Unknown]
  - Spinal fusion surgery [Unknown]
  - Back pain [Unknown]
  - Gastrooesophageal reflux disease [Unknown]
  - Arthroscopy [Unknown]
  - Explorative laparotomy [Unknown]
  - Metastases to lung [Unknown]
  - Rotator cuff repair [Unknown]
  - Acute kidney injury [Unknown]
  - Urinary tract infection [Unknown]
  - Mental status changes [Unknown]
  - Musculoskeletal pain [Unknown]

NARRATIVE: CASE EVENT DATE: 20090209
